FAERS Safety Report 11456751 (Version 1)
Quarter: 2015Q3

REPORT INFORMATION
  Report Type: Report from Study
  Country: US (occurrence: US)
  Receive Date: 20150903
  Receipt Date: 20150903
  Transmission Date: 20151125
  Serious: No
  Sender: FDA-Public Use
  Company Number: US-AMGEN-USASL2015089888

PATIENT
  Age: 39 Year
  Sex: Female

DRUGS (3)
  1. ENBREL [Suspect]
     Active Substance: ETANERCEPT
     Indication: RHEUMATOID ARTHRITIS
     Dosage: 50 MG WEEKLY
     Route: 065
     Dates: start: 2005
  2. ENBREL [Suspect]
     Active Substance: ETANERCEPT
     Dosage: UNK, Q2WK
     Route: 065
  3. PREDNISONE. [Concomitant]
     Active Substance: PREDNISONE
     Dosage: OCCASIONALLY

REACTIONS (2)
  - Suppressed lactation [Unknown]
  - Pregnancy [Recovered/Resolved]
